FAERS Safety Report 20095421 (Version 2)
Quarter: 2021Q4

REPORT INFORMATION
  Report Type: Spontaneous
  Country: JP (occurrence: JP)
  Receive Date: 20211122
  Receipt Date: 20211124
  Transmission Date: 20220303
  Serious: Yes (Life-Threatening, Hospitalization, Other)
  Sender: FDA-Public Use
  Company Number: None

PATIENT
  Sex: Male

DRUGS (3)
  1. PREDNISOLONE [Suspect]
     Active Substance: PREDNISOLONE
     Indication: Systemic lupus erythematosus
     Dosage: 10 MILLIGRAM, QD
     Route: 065
  2. TACROLIMUS [Suspect]
     Active Substance: TACROLIMUS
     Indication: Systemic lupus erythematosus
     Dosage: UNK
     Route: 065
  3. METHOTREXATE [Suspect]
     Active Substance: METHOTREXATE
     Indication: Systemic lupus erythematosus
     Dosage: UNK
     Route: 065

REACTIONS (14)
  - Aortic aneurysm [Recovered/Resolved]
  - Infective aneurysm [Unknown]
  - Thrombosis [Recovered/Resolved]
  - Acute kidney injury [Recovered/Resolved]
  - Intervertebral discitis [Recovered/Resolved]
  - Sepsis [Unknown]
  - Septic shock [Recovered/Resolved]
  - Muscle abscess [Recovered/Resolved]
  - Staphylococcal infection [Recovered/Resolved]
  - Urinary tract infection [Unknown]
  - Osteomyelitis [Unknown]
  - Cytomegalovirus gastrointestinal infection [Unknown]
  - Staphylococcal infection [Recovered/Resolved]
  - Off label use [Unknown]
